FAERS Safety Report 11927868 (Version 1)
Quarter: 2016Q1

REPORT INFORMATION
  Report Type: Spontaneous
  Country: US (occurrence: US)
  Receive Date: 20160119
  Receipt Date: 20160119
  Transmission Date: 20160526
  Serious: Yes (Hospitalization)
  Sender: FDA-Public Use
  Company Number: US-AMGEN-USASP2016004671

PATIENT
  Age: 66 Year
  Sex: Male

DRUGS (1)
  1. NEULASTA [Suspect]
     Active Substance: PEGFILGRASTIM
     Indication: METASTATIC CARCINOMA OF THE BLADDER
     Dosage: UNK UNK, UNK
     Route: 065

REACTIONS (2)
  - Platelet count decreased [Unknown]
  - Thrombosis [Unknown]
